FAERS Safety Report 7965437-2 (Version None)
Quarter: 2011Q4

REPORT INFORMATION
  Report Type: 
  Country: None (occurrence: None)
  Receive Date: 20111208
  Receipt Date: 20111128
  Transmission Date: 20120403
  Serious: Yes (Hospitalization)
  Sender: FDA-Public Use
  Company Number: US-ABBOTT-11P-163-0859412-02

PATIENT
  Sex: Female

DRUGS (15)
  1. CIMZIA [Concomitant]
     Indication: CROHN'S DISEASE
     Route: 058
     Dates: start: 20100331, end: 20101105
  2. LANTUS [Concomitant]
     Indication: DIABETES MELLITUS
     Dates: start: 20070101
  3. HUMALOG [Concomitant]
     Indication: CROHN'S DISEASE
     Dosage: SLIDING SCALE - MAXIMUM DAILY DOSE 20 UNITS
     Dates: start: 20060101
  4. STOMATOLOGICALS, MOUTH PREPARATIONS [Concomitant]
     Indication: MOUTH ULCERATION
     Dates: start: 20100127
  5. MAGNESIUM OXIDE [Concomitant]
     Indication: BLOOD MAGNESIUM DECREASED
     Dates: start: 20091019
  6. HUMIRA [Suspect]
     Indication: CROHN'S DISEASE
     Route: 058
     Dates: start: 20080222, end: 20100316
  7. CALCIUM [Concomitant]
     Indication: MINERAL SUPPLEMENTATION
     Dates: start: 20080122
  8. ALBUTEROL SULFATE AUTOHALER [Concomitant]
     Indication: DYSPNOEA
     Dates: start: 20091123
  9. ULTRAM [Concomitant]
     Indication: PAIN
     Dates: start: 20090902
  10. PREDNISONE TAB [Concomitant]
     Indication: CROHN'S DISEASE
     Dates: start: 20110101
  11. HUMIRA [Suspect]
     Route: 058
  12. TYSABRI [Concomitant]
     Indication: CROHN'S DISEASE
     Dosage: 300MG/15 ML
     Dates: start: 20110101
  13. FOLIC ACID [Concomitant]
     Indication: VITAMIN SUPPLEMENTATION
     Dates: start: 20040919
  14. FLINTSTONES [Concomitant]
     Indication: VITAMIN SUPPLEMENTATION
     Dates: start: 20060101
  15. ALBUTEROL SULFATE AUTOHALER [Concomitant]
     Indication: COUGH

REACTIONS (3)
  - CONDITION AGGRAVATED [None]
  - DRUG INEFFECTIVE [None]
  - CROHN'S DISEASE [None]
